FAERS Safety Report 26112718 (Version 1)
Quarter: 2025Q4

REPORT INFORMATION
  Report Type: Spontaneous
  Country: EU (occurrence: EU)
  Receive Date: 20251202
  Receipt Date: 20251202
  Transmission Date: 20260117
  Serious: Yes (Hospitalization)
  Sender: ALEXION PHARMACEUTICALS
  Company Number: EU-ASTRAZENECA-202511GLO028470FR

PATIENT
  Age: 14 Year
  Sex: Female
  Weight: 68 kg

DRUGS (2)
  1. OMEPRAZOLE [Suspect]
     Active Substance: OMEPRAZOLE
     Indication: Prophylaxis
     Dosage: UNK
     Dates: start: 20240819, end: 20240822
  2. MIDAZOLAM [Suspect]
     Active Substance: MIDAZOLAM
     Indication: Anaesthesia
     Dosage: UNK
     Dates: start: 20240819, end: 20240819

REACTIONS (7)
  - Urinary retention [Recovered/Resolved]
  - Anuria [Recovered/Resolved]
  - Constipation [Recovered/Resolved]
  - Hepatic cytolysis [Recovered/Resolved]
  - Feeding disorder [Unknown]
  - Nausea [Unknown]
  - Mycoplasma infection [Unknown]

NARRATIVE: CASE EVENT DATE: 20240801
